FAERS Safety Report 8552711-4 (Version None)
Quarter: 2012Q3

REPORT INFORMATION
  Report Type: 
  Country: None (occurrence: None)
  Receive Date: 20120731
  Receipt Date: 20120723
  Transmission Date: 20120928
  Serious: Yes (Other)
  Sender: FDA-Public Use
  Company Number: PHHY2012JP027374

PATIENT
  Age: 67 Year
  Sex: Female

DRUGS (2)
  1. ALENDRONATE SODIUM [Concomitant]
     Indication: METASTASES TO BONE
     Route: 048
     Dates: start: 20110401
  2. ZOLEDRONIC ACID [Suspect]
     Indication: METASTASES TO BONE
     Route: 041
     Dates: start: 20081201, end: 20110401

REACTIONS (4)
  - BONE DISORDER [None]
  - PATHOLOGICAL FRACTURE [None]
  - FEMUR FRACTURE [None]
  - PAIN IN EXTREMITY [None]
